FAERS Safety Report 7469605-8 (Version None)
Quarter: 2011Q2

REPORT INFORMATION
  Report Type: 
  Country: None (occurrence: None)
  Receive Date: 20110429
  Receipt Date: 20110420
  Transmission Date: 20111010
  Serious: Yes (Hospitalization)
  Sender: FDA-Public Use
  Company Number: 1000018276

PATIENT
  Age: 21 Year
  Sex: Female
  Weight: 72 kg

DRUGS (5)
  1. SEROQUEL [Suspect]
     Indication: DEPRESSION
     Dosage: 350 MG (350 MG,1 IN 1 D), ORAL
     Route: 048
     Dates: end: 20100602
  2. TEMESTA (LORAZEPAM) (TABLETS) (LORAZEPAM) [Concomitant]
  3. DEPAKINE (VALPROIC ACID) (TABLETS) (VALPROIC ACID) [Concomitant]
  4. ESCITALOPRAM [Suspect]
     Indication: DEPRESSION
     Dosage: 20 MG (20 MG) , ORAL
     Route: 048
     Dates: end: 20100629
  5. MARVELON (MARVELON0 (MARVELON) [Concomitant]

REACTIONS (2)
  - GALACTORRHOEA [None]
  - BREAST PAIN [None]
